FAERS Safety Report 9188181 (Version 2)
Quarter: 2012Q4

REPORT INFORMATION
  Report Type: 
  Country: US (occurrence: US)
  Receive Date: 20121126
  Receipt Date: 20121128
  Transmission Date: 20130627
  Serious: Yes (Other)
  Sender: FDA-Public Use
  Company Number: US-RB-046862-12

PATIENT
  Age: 11 Year
  Sex: Female

DRUGS (2)
  1. MUCINEX DM MAXIMUM STRENGTH (GUAIFENESIN) [Suspect]
     Indication: PRODUCT USED FOR UNKNOWN INDICATION
     Dosage: Patient received a dose at 8:30pm on 16-NOV-2012 and again at 3:30am on 17-NOV-2012
     Route: 048
     Dates: start: 20121116
  2. MUCINEX DM MAXIMUM STRENGTH [Suspect]

REACTIONS (4)
  - Hallucination [Recovered/Resolved]
  - Emotional distress [Recovered/Resolved]
  - Crying [Recovered/Resolved]
  - Accidental exposure to product by child [Recovered/Resolved]
